FAERS Safety Report 18044504 (Version 1)
Quarter: 2020Q3

REPORT INFORMATION
  Report Type: Report from Study
  Country: IT (occurrence: IT)
  Receive Date: 20200720
  Receipt Date: 20200720
  Transmission Date: 20201103
  Serious: Yes (Death)
  Sender: FDA-Public Use
  Company Number: IT-ROCHE-2644585

PATIENT
  Age: 69 Year

DRUGS (5)
  1. PROPOFOL. [Concomitant]
     Active Substance: PROPOFOL
  2. EPARINA [Concomitant]
  3. OXACILINA [Concomitant]
     Active Substance: OXACILLIN SODIUM
  4. NORADRENALINE [Concomitant]
     Active Substance: NOREPINEPHRINE
  5. TOCILIZUMAB. [Suspect]
     Active Substance: TOCILIZUMAB
     Indication: COVID-19 PNEUMONIA
     Dosage: AT AN INTERVAL OF 12 HOURS?ON 26/MAR/2020, PATIENT RECEIVED THE MOST RECENT DOSE OF TOCILIZUMAB PRIO
     Route: 042

REACTIONS (1)
  - Respiratory failure [Fatal]

NARRATIVE: CASE EVENT DATE: 20200418
